FAERS Safety Report 13288106 (Version 1)
Quarter: 2017Q1

REPORT INFORMATION
  Report Type: Spontaneous
  Country: DK (occurrence: DK)
  Receive Date: 20170302
  Receipt Date: 20170302
  Transmission Date: 20170428
  Serious: Yes (Other)
  Sender: FDA-Public Use
  Company Number: DK-TEVA-741532ISR

PATIENT
  Age: 71 Year
  Sex: Male

DRUGS (2)
  1. QUETIAPINE ^TEVA^ [Suspect]
     Active Substance: QUETIAPINE
     Indication: SEDATION
     Dosage: 25 MG MORNING, 50 MG EVENING, 50 MG PRN
     Route: 048
     Dates: start: 201601
  2. ALOPAM [Concomitant]
     Active Substance: OXAZEPAM

REACTIONS (2)
  - Hypotension [Not Recovered/Not Resolved]
  - Infarction [Not Recovered/Not Resolved]

NARRATIVE: CASE EVENT DATE: 201612
